FAERS Safety Report 20807285 (Version 1)
Quarter: 2022Q2

REPORT INFORMATION
  Report Type: Spontaneous
  Country: GB (occurrence: GB)
  Receive Date: 20220510
  Receipt Date: 20220510
  Transmission Date: 20220720
  Serious: Yes (Hospitalization)
  Sender: FDA-Public Use
  Company Number: GB-LUPIN PHARMACEUTICALS INC.-2022-06722

PATIENT
  Age: 18 Year
  Sex: Female

DRUGS (11)
  1. MORPHINE [Suspect]
     Active Substance: MORPHINE
     Indication: Ehlers-Danlos syndrome
     Dosage: UNK, ADDED A MINIMUM MORPHINE EQUIVALENT DAILY DOSE OF 220MG
     Route: 065
  2. FENTANYL [Suspect]
     Active Substance: FENTANYL
     Indication: Ehlers-Danlos syndrome
     Dosage: 25 MICROGRAM PER HOUR
     Route: 062
  3. BUPRENORPHINE [Suspect]
     Active Substance: BUPRENORPHINE
     Indication: Ehlers-Danlos syndrome
     Dosage: 400 MICROGRAM, QID
     Route: 065
  4. DIAZEPAM [Suspect]
     Active Substance: DIAZEPAM
     Indication: Ehlers-Danlos syndrome
     Dosage: UNK
     Route: 065
  5. BOTOX [Suspect]
     Active Substance: ONABOTULINUMTOXINA
     Indication: Ehlers-Danlos syndrome
     Dosage: UNK
     Route: 065
  6. Cannabidiol;Tetrahydrocannabinols nos [Concomitant]
     Indication: Ehlers-Danlos syndrome
     Dosage: UNK, 22% TETRAHYDROCANNABINOL AND {1% CANNABIDIOL; FLOWER
     Route: 065
  7. Cannabidiol;Tetrahydrocannabinols nos [Concomitant]
     Dosage: UNK, 14% TETRAHYDROCANNABINOL AND {1% CANNABIDIOL; FLOWER
     Route: 065
  8. Cannabidiol;Tetrahydrocannabinols nos [Concomitant]
     Dosage: UNK, TETRAHYDROCANNABINOL 10MG/ML AND CANNABIDIOL 10 MG/ML ; OIL
     Route: 065
  9. Cannabidiol;Tetrahydrocannabinols nos [Concomitant]
     Dosage: UNK, DRIED FLOWERS
     Route: 065
  10. CANNABIDIOL [Concomitant]
     Active Substance: CANNABIDIOL
     Indication: Ehlers-Danlos syndrome
     Dosage: UNK, OIL
     Route: 065
  11. FLUOXETINE [Concomitant]
     Active Substance: FLUOXETINE HYDROCHLORIDE
     Indication: Ehlers-Danlos syndrome
     Dosage: UNK
     Route: 065

REACTIONS (2)
  - Drug ineffective for unapproved indication [Unknown]
  - Off label use [Unknown]
